FAERS Safety Report 5855906-3 (Version None)
Quarter: 2008Q3

REPORT INFORMATION
  Report Type: 
  Country: None (occurrence: None)
  Receive Date: 20080821
  Receipt Date: 20080821
  Transmission Date: 20090109
  Serious: Yes (Hospitalization)
  Sender: FDA-Public Use
  Company Number: None

PATIENT
  Sex: Female
  Weight: 88.905 kg

DRUGS (2)
  1. AVASTIN [Suspect]
     Indication: BREAST CANCER METASTATIC
     Dosage: 1000MG Q14D IV DRIP
     Route: 041
     Dates: start: 20080507, end: 20080702
  2. AVASTIN [Suspect]
     Dates: start: 20080507, end: 20080702

REACTIONS (3)
  - ABDOMINAL ABSCESS [None]
  - DUODENAL ULCER PERFORATION [None]
  - GASTROINTESTINAL PERFORATION [None]
